FAERS Safety Report 7637989-3 (Version None)
Quarter: 2011Q3

REPORT INFORMATION
  Report Type: 
  Country: None (occurrence: None)
  Receive Date: 20110720
  Receipt Date: 20110712
  Transmission Date: 20111222
  Serious: Yes (Hospitalization)
  Sender: FDA-Public Use
  Company Number: US-001861

PATIENT
  Sex: Female
  Weight: 91.6 kg

DRUGS (2)
  1. PRENATAL VITAMINS /01549301/ [Concomitant]
  2. KUVAN [Suspect]
     Indication: PHENYLKETONURIA
     Dosage: (1500 MG QD ORAL)
     Route: 048
     Dates: start: 20090130

REACTIONS (4)
  - CAESAREAN SECTION [None]
  - PREGNANCY [None]
  - MATERNAL EXPOSURE DURING PREGNANCY [None]
  - GESTATIONAL DIABETES [None]
